FAERS Safety Report 5463809-1 (Version None)
Quarter: 2007Q3

REPORT INFORMATION
  Report Type: 
  Country: None (occurrence: None)
  Receive Date: 20070919
  Receipt Date: 20070910
  Transmission Date: 20080115
  Serious: Yes (Other)
  Sender: FDA-Public Use
  Company Number: 13862750

PATIENT
  Sex: Female

DRUGS (15)
  1. EMSAM [Suspect]
     Indication: DEPRESSION
     Dosage: 6 MILLIGRAM, 24 HOUR TD
     Route: 062
     Dates: start: 20070416, end: 20070417
  2. AMBIEN CR [Concomitant]
  3. ADALAT [Concomitant]
  4. ASPIRIN [Concomitant]
  5. DARVOCET [Concomitant]
  6. DEPAKOTE [Concomitant]
  7. FOLIC ACID [Concomitant]
  8. FOSAMAX [Concomitant]
  9. INSULIN [Concomitant]
  10. LASIX [Concomitant]
  11. METOLAZONE [Concomitant]
  12. METFORMIN [Concomitant]
  13. SYNTHROID [Concomitant]
  14. VYTORIN [Concomitant]
  15. CALCIUM CARBONATE [Concomitant]

REACTIONS (3)
  - BLINDNESS UNILATERAL [None]
  - CEREBRAL ARTERY OCCLUSION [None]
  - HEMIANOPIA HOMONYMOUS [None]
